FAERS Safety Report 12128014 (Version 1)
Quarter: 2016Q1

REPORT INFORMATION
  Report Type: Spontaneous
  Country: US (occurrence: US)
  Receive Date: 20160226
  Receipt Date: 20160226
  Transmission Date: 20160526
  Serious: No
  Sender: FDA-Public Use
  Company Number: US-ALLERGAN-1502764US

PATIENT
  Age: 69 Year
  Sex: Female

DRUGS (3)
  1. VITAMIN D+A [Concomitant]
     Indication: PRODUCT USED FOR UNKNOWN INDICATION
  2. REFRESH OPTIVE [Suspect]
     Active Substance: CARBOXYMETHYLCELLULOSE SODIUM\GLYCERIN
     Indication: DRY EYE
     Dosage: UNK, TID
     Route: 047
     Dates: start: 2014
  3. FISH OIL [Concomitant]
     Active Substance: FISH OIL
     Indication: PRODUCT USED FOR UNKNOWN INDICATION

REACTIONS (2)
  - Lacrimation increased [Unknown]
  - Instillation site pain [Unknown]
